FAERS Safety Report 9865493 (Version 1)
Quarter: 2014Q1

REPORT INFORMATION
  Report Type: Spontaneous
  Country: US (occurrence: US)
  Receive Date: 20140203
  Receipt Date: 20140203
  Transmission Date: 20141002
  Serious: No
  Sender: FDA-Public Use
  Company Number: US-ALLERGAN-1308533US

PATIENT
  Age: 57 Year
  Sex: Female

DRUGS (4)
  1. RESTASIS [Suspect]
     Indication: DRY EYE
     Dosage: 2 GTT, BID
     Route: 047
  2. SYNTHROID [Concomitant]
     Indication: HYPOTHYROIDISM
  3. FISH OIL [Concomitant]
     Indication: PRODUCT USED FOR UNKNOWN INDICATION
     Dosage: UNK
  4. ALLERGY MEDICATION NOS [Concomitant]
     Indication: HYPERSENSITIVITY

REACTIONS (4)
  - Lip swelling [Not Recovered/Not Resolved]
  - Chapped lips [Unknown]
  - Erythema of eyelid [Unknown]
  - Eye swelling [Recovered/Resolved]
